FAERS Safety Report 10648876 (Version 1)
Quarter: 2014Q4

REPORT INFORMATION
  Report Type: Spontaneous
  Country: US (occurrence: US)
  Receive Date: 20141212
  Receipt Date: 20141212
  Transmission Date: 20150529
  Serious: Yes (Hospitalization)
  Sender: FDA-Public Use
  Company Number: US-ASTELLAS-2014US019312

PATIENT
  Age: 58 Year
  Sex: Female

DRUGS (1)
  1. PROGRAF [Suspect]
     Active Substance: TACROLIMUS\TACROLIMUS ANHYDROUS
     Indication: HEART TRANSPLANT
     Route: 048
     Dates: start: 20051125, end: 20141202

REACTIONS (4)
  - Hypertension [Unknown]
  - Pneumonia [Unknown]
  - Tremor [Unknown]
  - Renal disorder [Unknown]

NARRATIVE: CASE EVENT DATE: 20141124
